FAERS Safety Report 7830958-X (Version None)
Quarter: 2011Q4

REPORT INFORMATION
  Report Type: 
  Country: None (occurrence: None)
  Receive Date: 20111021
  Receipt Date: 20111018
  Transmission Date: 20120403
  Serious: Yes (Other)
  Sender: FDA-Public Use
  Company Number: US-PFIZER INC-2011212795

PATIENT
  Sex: Female
  Weight: 82 kg

DRUGS (3)
  1. VERAPAMIL [Suspect]
     Indication: HYPERTENSION
     Dosage: 120 MG, 1X/DAY
     Dates: start: 20110501
  2. NEXIUM [Concomitant]
     Indication: GASTROOESOPHAGEAL REFLUX DISEASE
     Dosage: UNK
  3. CALAN [Suspect]
     Indication: HYPERTENSION
     Dosage: UNK
     Route: 048

REACTIONS (7)
  - NAUSEA [None]
  - GAIT DISTURBANCE [None]
  - BLOOD IRON DECREASED [None]
  - HYPERTENSION [None]
  - DIZZINESS [None]
  - FATIGUE [None]
  - SOMNOLENCE [None]
